FAERS Safety Report 5871568-3 (Version None)
Quarter: 2008Q3

REPORT INFORMATION
  Report Type: 
  Country: None (occurrence: None)
  Receive Date: 20080905
  Receipt Date: 20080502
  Transmission Date: 20090109
  Serious: No
  Sender: FDA-Public Use
  Company Number: A0727086A

PATIENT
  Age: 54 Year
  Sex: Male
  Weight: 75.9 kg

DRUGS (3)
  1. REQUIP [Suspect]
     Indication: RESTLESS LEGS SYNDROME
     Dosage: .5MG PER DAY
     Route: 048
     Dates: start: 20070301, end: 20070601
  2. TRICOR [Suspect]
     Dosage: 145MG PER DAY
     Route: 048
     Dates: start: 20070501, end: 20070601
  3. MOMETASONE FUROATE [Concomitant]
     Indication: MULTIPLE ALLERGIES

REACTIONS (3)
  - ARTHRALGIA [None]
  - EAR DISCOMFORT [None]
  - PAIN IN EXTREMITY [None]
